FAERS Safety Report 18840104 (Version 3)
Quarter: 2022Q1

REPORT INFORMATION
  Report Type: Spontaneous
  Country: GB (occurrence: GB)
  Receive Date: 20210203
  Receipt Date: 20220110
  Transmission Date: 20220424
  Serious: Yes (Hospitalization, Other)
  Sender: FDA-Public Use
  Company Number: None

PATIENT
  Age: 35 Year
  Sex: Female

DRUGS (26)
  1. CAPECITABINE [Suspect]
     Active Substance: CAPECITABINE
     Indication: Breast cancer metastatic
     Dosage: 1950 MILLIGRAM, 0.5 DAY
     Route: 048
     Dates: start: 20180905, end: 20190327
  2. DOCETAXEL [Suspect]
     Active Substance: DOCETAXEL
     Indication: Breast cancer metastatic
     Dosage: 140 MILLIGRAM, Q3WK
     Route: 042
     Dates: start: 20160812, end: 20160812
  3. EPIRUBICIN HYDROCHLORIDE [Suspect]
     Active Substance: EPIRUBICIN HYDROCHLORIDE
     Indication: Breast cancer metastatic
     Dosage: 22.5 MILLIGRAM, QWK
     Route: 042
     Dates: start: 20200512, end: 20200518
  4. ERIBULIN [Suspect]
     Active Substance: ERIBULIN
     Indication: Breast cancer metastatic
     Dosage: 1.23 MILLIGRAM/SQ. METER, Q3WK
     Route: 042
     Dates: start: 20190516, end: 20190516
  5. XGEVA [Suspect]
     Active Substance: DENOSUMAB
     Indication: Metastases to bone
     Dosage: 120 MILLIGRAM, Q3WK
     Route: 042
     Dates: start: 20160721
  6. PERTUZUMAB [Suspect]
     Active Substance: PERTUZUMAB
     Indication: HER2 positive breast cancer
     Dosage: 840 MILLIGRAM, QD
     Route: 042
     Dates: start: 20160721, end: 20160721
  7. TRASTUZUMAB [Suspect]
     Active Substance: TRASTUZUMAB
     Indication: HER2 positive breast cancer
     Dosage: LOADING DOSE MODIFIED AS SWITCHED TO MAINTENANCE
     Route: 042
     Dates: start: 20160722, end: 20160722
  8. ADO-TRASTUZUMAB EMTANSINE [Suspect]
     Active Substance: ADO-TRASTUZUMAB EMTANSINE
     Indication: Breast cancer metastatic
     Dosage: 3.6 MILLIGRAM/SQ. METER, Q3WK
     Route: 042
     Dates: start: 20171212, end: 20180817
  9. VENLAFAXINE [Concomitant]
     Active Substance: VENLAFAXINE HYDROCHLORIDE
     Indication: Abdominal pain
     Dosage: 75 MILLIGRAM,  BID
     Route: 048
     Dates: start: 20201215
  10. DEXAMETHASONE [Concomitant]
     Active Substance: DEXAMETHASONE
     Indication: Abdominal pain
     Dosage: 6 MILLIGRAM, QD
     Route: 048
     Dates: start: 20201215
  11. EPIRUBICIN [Concomitant]
     Active Substance: EPIRUBICIN
     Indication: Breast cancer metastatic
     Dosage: 22.5 MILLIGRAM/SQ. METER, QWK
     Route: 042
     Dates: start: 20200512, end: 20200820
  12. MIDAZOLAM [Concomitant]
     Active Substance: MIDAZOLAM
     Indication: Abdominal pain
     Dosage: 2.5 MILLIGRAM
     Route: 058
  13. OXYCODONE [Concomitant]
     Active Substance: OXYCODONE
     Indication: Abdominal pain
     Dosage: 10 MILLIGRAM
     Route: 058
  14. AMLODIPINE [Concomitant]
     Active Substance: AMLODIPINE BESYLATE
     Indication: Abdominal pain
     Dosage: 5 MILLIGRAM, QD
     Route: 048
     Dates: start: 20201217
  15. BECLOMETHASONE DIPROPIONATE [Concomitant]
     Active Substance: BECLOMETHASONE DIPROPIONATE
     Dosage: 200 MILLIGRAM, 0.5 DAY
     Route: 055
  16. BENZYDAMINE [Concomitant]
     Active Substance: BENZYDAMINE
     Dosage: 0.15 PERCENT, 0.25 DAY
     Route: 048
  17. CLOTRIMAZOLE [Concomitant]
     Active Substance: CLOTRIMAZOLE
     Indication: Abdominal pain
     Dosage: 1 PERCENT
     Route: 061
     Dates: start: 20201216
  18. DOCUSATE [Concomitant]
     Active Substance: DOCUSATE
     Indication: Abdominal pain
     Dosage: 200 MILLIGRAM, 0.5 DAY
     Route: 048
     Dates: start: 20201215
  19. GABAPENTIN [Concomitant]
     Active Substance: GABAPENTIN
     Indication: Abdominal pain
     Dosage: 400 MILLIGRAM, 0.33 DAY
     Route: 048
     Dates: start: 20201215
  20. GLYCOPYRRONIUM [Concomitant]
     Active Substance: GLYCOPYRRONIUM
     Indication: Dyspnoea
     Dosage: 200 MILLIGRAM
     Route: 058
  21. HALOPERIDOL [Concomitant]
     Active Substance: HALOPERIDOL
     Indication: Abdominal pain
     Dosage: 0.5 MILLIGRAM
     Route: 058
  22. LANSOPRAZOLE [Concomitant]
     Active Substance: LANSOPRAZOLE
     Indication: Abdominal pain
     Dosage: 30 MILLIGRAM, QD
     Route: 048
     Dates: start: 20201215
  23. LEVOMEPROMAZINE [Concomitant]
     Active Substance: LEVOMEPROMAZINE
     Indication: Abdominal pain
     Dosage: 3.13 MILLIGRAM
     Route: 058
  24. LORAZEPAM [Concomitant]
     Active Substance: LORAZEPAM
     Indication: Abdominal pain
     Dosage: 1 MILLIGRAM, QD
     Route: 048
     Dates: start: 20201215
  25. ALBUTEROL [Concomitant]
     Active Substance: ALBUTEROL
     Indication: Dyspnoea
     Dosage: 100 MICROGRAM, 0.25 DAY
     Route: 055
  26. SODIUM CHLORIDE [Concomitant]
     Active Substance: SODIUM CHLORIDE
     Indication: Abdominal pain
     Dosage: 0.9 PERCENT
     Route: 042
     Dates: start: 20201215

REACTIONS (3)
  - Headache [Recovered/Resolved]
  - Pyrexia [Recovered/Resolved]
  - Intentional product use issue [Unknown]

NARRATIVE: CASE EVENT DATE: 20190113
